FAERS Safety Report 14754000 (Version 10)
Quarter: 2019Q4

REPORT INFORMATION
  Report Type: Report from Study
  Country: US (occurrence: US)
  Receive Date: 20180412
  Receipt Date: 20191122
  Transmission Date: 20200122
  Serious: Yes (Hospitalization, Disabling, Other)
  Sender: FDA-Public Use
  Company Number: US-ACTELION-A-US2016-132009

PATIENT
  Age: 59 Year
  Sex: Female

DRUGS (31)
  1. PACLITAXEL. [Concomitant]
     Active Substance: PACLITAXEL
  2. GUAIFENESIN. [Concomitant]
     Active Substance: GUAIFENESIN
  3. PREDNISONE ACETATE [Concomitant]
     Active Substance: PREDNISONE ACETATE
  4. NEULASTA [Concomitant]
     Active Substance: PEGFILGRASTIM
  5. VITAMIN B12 + FOLIC ACID [Concomitant]
  6. OPSUMIT [Suspect]
     Active Substance: MACITENTAN
     Dosage: UNK
     Route: 048
     Dates: start: 20140403
  7. OMEPRAZOLE. [Concomitant]
     Active Substance: OMEPRAZOLE
  8. ZANTAC [Concomitant]
     Active Substance: RANITIDINE HYDROCHLORIDE
  9. ADEMPAS [Concomitant]
     Active Substance: RIOCIGUAT
  10. OPSUMIT [Suspect]
     Active Substance: MACITENTAN
     Indication: PULMONARY ARTERIAL HYPERTENSION
     Dosage: 10 MG, QD
     Route: 048
     Dates: start: 20160118
  11. ANORO ELLIPTA [Concomitant]
     Active Substance: UMECLIDINIUM BROMIDE\VILANTEROL TRIFENATATE
     Indication: DYSPNOEA
     Dosage: UNK
     Dates: start: 20180222
  12. DOXORUBICIN [Concomitant]
     Active Substance: DOXORUBICIN
  13. BUPROPION. [Concomitant]
     Active Substance: BUPROPION
  14. ADCIRCA [Concomitant]
     Active Substance: TADALAFIL
     Dosage: 20 MG, UNK
  15. CITRACAL + D [Concomitant]
     Active Substance: CALCIUM CITRATE\VITAMIN D
     Dosage: 250-200 MCG-UNIT
  16. ONDANSETRON [Concomitant]
     Active Substance: ONDANSETRON
  17. DIPHENHYDRAMINE. [Concomitant]
     Active Substance: DIPHENHYDRAMINE
  18. LEVOFLOXACIN. [Concomitant]
     Active Substance: LEVOFLOXACIN
  19. SPIRIVA [Concomitant]
     Active Substance: TIOTROPIUM BROMIDE MONOHYDRATE
     Dosage: 18 MCG, UNK
  20. CANNABIDIOL [Concomitant]
     Active Substance: CANNABIDIOL
     Dosage: 1 QD
  21. FENTANYL. [Concomitant]
     Active Substance: FENTANYL
  22. ADRIAMYCIN [Concomitant]
     Active Substance: DOXORUBICIN HYDROCHLORIDE
  23. FLUTICASONE. [Concomitant]
     Active Substance: FLUTICASONE
  24. VITAMIN D3 [Concomitant]
     Active Substance: CHOLECALCIFEROL
     Dosage: 5000 U, UNK
  25. FAMOTIDINE. [Concomitant]
     Active Substance: FAMOTIDINE
  26. CARBOPLATIN. [Concomitant]
     Active Substance: CARBOPLATIN
  27. CELLCEPT [Concomitant]
     Active Substance: MYCOPHENOLATE MOFETIL\MYCOPHENOLATE MOFETIL HYDROCHLORIDE
  28. AMOXICILLIN AND CLAVULA. POTASSIUM [Concomitant]
     Active Substance: AMOXICILLIN\CLAVULANATE POTASSIUM
     Dosage: UNK, BID
  29. OFLOXACIN. [Concomitant]
     Active Substance: OFLOXACIN
  30. DEXAMETHASONE. [Concomitant]
     Active Substance: DEXAMETHASONE
  31. BUPROPION HCL [Concomitant]
     Active Substance: BUPROPION HYDROCHLORIDE

REACTIONS (28)
  - Breast cancer stage III [Unknown]
  - Ear canal stenosis [Recovering/Resolving]
  - Nasal congestion [Not Recovered/Not Resolved]
  - Drug ineffective [Not Recovered/Not Resolved]
  - Pyrexia [Recovered/Resolved]
  - Malaise [Recovered/Resolved]
  - Arthropod bite [Recovered/Resolved]
  - Cough [Recovered/Resolved]
  - Nodule [Not Recovered/Not Resolved]
  - Decreased appetite [Not Recovered/Not Resolved]
  - Radical mastectomy [Unknown]
  - Chills [Recovered/Resolved]
  - Fatigue [Recovered/Resolved]
  - White blood cell count decreased [Not Recovered/Not Resolved]
  - Gastritis [Not Recovered/Not Resolved]
  - Infection [Recovering/Resolving]
  - Oropharyngeal pain [Not Recovered/Not Resolved]
  - Pleuritic pain [Not Recovered/Not Resolved]
  - Cataract [Recovering/Resolving]
  - Constipation [Not Recovered/Not Resolved]
  - Depression [Not Recovered/Not Resolved]
  - Abdominal discomfort [Not Recovered/Not Resolved]
  - Arthralgia [Recovered/Resolved]
  - Skin swelling [Recovered/Resolved]
  - Dyspnoea [Unknown]
  - Haemoglobin decreased [Not Recovered/Not Resolved]
  - Epistaxis [Unknown]
  - Abdominal pain upper [Not Recovered/Not Resolved]

NARRATIVE: CASE EVENT DATE: 20160201
